FAERS Safety Report 6084651-7 (Version None)
Quarter: 2009Q1

REPORT INFORMATION
  Report Type: 
  Country: None (occurrence: None)
  Receive Date: 20090211
  Receipt Date: 20041203
  Transmission Date: 20090719
  Serious: Yes (Death)
  Sender: FDA-Public Use
  Company Number: US-WYE-H07134708

PATIENT
  Age: 28 Year
  Sex: Male
  Weight: 89.8 kg

DRUGS (8)
  1. EFFEXOR [Suspect]
  2. CAFFEINE (CAFFEINE, ) [Suspect]
  3. CANNABIS (CANNABIS, ) [Suspect]
  4. IBUPROFEN TABLETS [Suspect]
  5. OXYCONTIN [Suspect]
     Dosage: OVERDOSE AMOUNT UNKNOWN
     Dates: start: 20000826, end: 20000826
  6. VALPROIC ACID [Suspect]
  7. HYDROXYZINE [Concomitant]
  8. DEPAKOTE [Concomitant]

REACTIONS (1)
  - ACCIDENTAL OVERDOSE [None]
